FAERS Safety Report 6306882-0 (Version None)
Quarter: 2009Q3

REPORT INFORMATION
  Report Type: 
  Country: None (occurrence: None)
  Receive Date: 20090812
  Receipt Date: 20090731
  Transmission Date: 20100115
  Serious: Yes (Death)
  Sender: FDA-Public Use
  Company Number: CL-PFIZER INC-2009250079

PATIENT

DRUGS (1)
  1. AZULFIDINE EN-TABS [Suspect]
     Route: 048
     Dates: start: 20041005

REACTIONS (1)
  - DEATH [None]
